FAERS Safety Report 7058446-1 (Version None)
Quarter: 2010Q4

REPORT INFORMATION
  Report Type: 
  Country: None (occurrence: None)
  Receive Date: 20101022
  Receipt Date: 20101012
  Transmission Date: 20110411
  Serious: No
  Sender: FDA-Public Use
  Company Number: US-PFIZER INC-2010130284

PATIENT
  Sex: Male
  Weight: 101.13 kg

DRUGS (2)
  1. VIAGRA [Suspect]
     Indication: ERECTILE DYSFUNCTION
     Dosage: UNK
     Dates: start: 20090101, end: 20090101
  2. CAVERJECT [Suspect]
     Indication: ERECTILE DYSFUNCTION
     Dosage: 40 UG, UNK
     Route: 017
     Dates: start: 20100101, end: 20100101

REACTIONS (1)
  - DRUG INEFFECTIVE [None]
